FAERS Safety Report 8058536-0 (Version None)
Quarter: 2012Q1

REPORT INFORMATION
  Report Type: 
  Country: None (occurrence: None)
  Receive Date: 20120120
  Receipt Date: 20110912
  Transmission Date: 20120608
  Serious: No
  Sender: FDA-Public Use
  Company Number: US-GLAXOSMITHKLINE-A0944160A

PATIENT
  Age: 54 Year
  Sex: Female

DRUGS (10)
  1. PLAVIX [Concomitant]
  2. ABILIFY [Concomitant]
  3. LEXAPRO [Concomitant]
  4. LOVAZA [Suspect]
     Indication: PERIPHERAL ARTERIAL OCCLUSIVE DISEASE
     Dosage: 3CAP PER DAY
     Route: 048
     Dates: start: 20090101
  5. INHALERS [Concomitant]
  6. AVANDARYL [Suspect]
     Indication: TYPE 2 DIABETES MELLITUS
     Dosage: 1TAB PER DAY
     Route: 048
     Dates: start: 20080101
  7. JANUMET [Concomitant]
  8. ANTIBIOTIC UNSPECIFIED [Suspect]
     Indication: EYE INFECTION
  9. EYE DROPS [Suspect]
     Indication: EYE INFECTION
  10. LISINOPRIL [Concomitant]

REACTIONS (2)
  - HYPERSENSITIVITY [None]
  - EYE INFECTION [None]
